FAERS Safety Report 23551687 (Version 1)
Quarter: 2024Q1

REPORT INFORMATION
  Report Type: Spontaneous
  Country: NL (occurrence: NL)
  Receive Date: 20240222
  Receipt Date: 20240222
  Transmission Date: 20240410
  Serious: Yes (Other)
  Sender: FDA-Public Use
  Company Number: NL-LRB-00251433

PATIENT
  Age: 58 Year
  Sex: Female
  Weight: 172 kg

DRUGS (2)
  1. AMITRIPTYLINE [Suspect]
     Active Substance: AMITRIPTYLINE
     Indication: Pancreaticoduodenectomy
     Dosage: 10 MILLIGRAM, ONCE A DAY
     Route: 065
     Dates: start: 20170828, end: 20170911
  2. AMITRIPTYLINE [Suspect]
     Active Substance: AMITRIPTYLINE
     Indication: Dizziness

REACTIONS (6)
  - Nephrolithiasis [Not Recovered/Not Resolved]
  - Glaucoma [Recovered/Resolved with Sequelae]
  - Optic nerve injury [Not Recovered/Not Resolved]
  - Renal pain [Not Recovered/Not Resolved]
  - Crystal urine [Not Recovered/Not Resolved]
  - Haematuria [Recovered/Resolved]

NARRATIVE: CASE EVENT DATE: 20170901
